FAERS Safety Report 4879032-5 (Version None)
Quarter: 2006Q1

REPORT INFORMATION
  Report Type: 
  Country: None (occurrence: None)
  Receive Date: 20060110
  Receipt Date: 20060110
  Transmission Date: 20060701
  Serious: Yes (Other)
  Sender: FDA-Public Use
  Company Number: None

PATIENT
  Sex: Female
  Weight: 75 kg

DRUGS (3)
  1. CARBOPLATIN [Suspect]
     Indication: ENDOMETRIAL CANCER
     Dosage: SEE IMAGE
     Dates: start: 20051213, end: 20051213
  2. TAXOL [Suspect]
     Dosage: SEE IMAGE
     Route: 042
     Dates: start: 20051213, end: 20051213
  3. SYNTHROID [Concomitant]

REACTIONS (1)
  - HAEMOGLOBIN ABNORMAL [None]
